FAERS Safety Report 15685047 (Version 4)
Quarter: 2020Q1

REPORT INFORMATION
  Report Type: Report from Study
  Country: US (occurrence: US)
  Receive Date: 20181204
  Receipt Date: 20200309
  Transmission Date: 20200409
  Serious: Yes (Death, Life-Threatening, Hospitalization, Other)
  Sender: FDA-Public Use
  Company Number: US-BRISTOL-MYERS SQUIBB COMPANY-BMS-2018-112246

PATIENT
  Age: 75 Year
  Sex: Male
  Weight: 80 kg

DRUGS (2)
  1. NIVOLUMAB [Suspect]
     Active Substance: NIVOLUMAB
     Indication: NON-SMALL CELL LUNG CANCER
     Dosage: 480 MG, UNK
     Route: 065
     Dates: start: 20180313, end: 20180925
  2. SODIUM CHLORIDE. [Suspect]
     Active Substance: SODIUM CHLORIDE
     Indication: HYPOVOLAEMIC SHOCK
     Dosage: UNK
     Route: 065

REACTIONS (11)
  - Metastases to central nervous system [Unknown]
  - Hypovolaemic shock [Unknown]
  - Anxiety [Unknown]
  - Hypoxia [Fatal]
  - Interstitial lung disease [Unknown]
  - Cardiac failure congestive [Unknown]
  - Brain oedema [Unknown]
  - Pulmonary toxicity [Fatal]
  - Deep vein thrombosis [Unknown]
  - Lower gastrointestinal haemorrhage [Unknown]
  - Autoimmune disorder [Unknown]

NARRATIVE: CASE EVENT DATE: 20181018
